FAERS Safety Report 5252518-X (Version None)
Quarter: 2007Q1

REPORT INFORMATION
  Report Type: 
  Country: None (occurrence: None)
  Receive Date: 20070301
  Receipt Date: 20070124
  Transmission Date: 20070707
  Serious: Yes (Other)
  Sender: FDA-Public Use
  Company Number: US-BRISTOL-MYERS SQUIBB COMPANY-13655212

PATIENT
  Age: 54 Year
  Sex: Male

DRUGS (3)
  1. ERBITUX [Suspect]
     Indication: NON-SMALL CELL LUNG CANCER
     Route: 042
     Dates: start: 20070120, end: 20070120
  2. BENADRYL [Concomitant]
     Indication: PREMEDICATION
     Dates: start: 20070120
  3. TYLENOL [Concomitant]
     Indication: PREMEDICATION
     Dates: start: 20070120

REACTIONS (4)
  - ANXIETY [None]
  - CYANOSIS [None]
  - DYSPNOEA [None]
  - FLUSHING [None]
